FAERS Safety Report 25321749 (Version 1)
Quarter: 2025Q2

REPORT INFORMATION
  Report Type: Spontaneous
  Country: US (occurrence: US)
  Receive Date: 20250516
  Receipt Date: 20250516
  Transmission Date: 20250716
  Serious: No
  Sender: GLAXOSMITHKLINE
  Company Number: US-GSK-US2025056477

PATIENT
  Age: 70 Year
  Sex: Female

DRUGS (1)
  1. JEMPERLI [Suspect]
     Active Substance: DOSTARLIMAB-GXLY
     Indication: Endometrial cancer metastatic
     Dates: start: 20250506

REACTIONS (1)
  - Conjunctival haemorrhage [Unknown]

NARRATIVE: CASE EVENT DATE: 20250506
